FAERS Safety Report 8144304-8 (Version None)
Quarter: 2012Q1

REPORT INFORMATION
  Report Type: 
  Country: None (occurrence: None)
  Receive Date: 20120214
  Receipt Date: 20120130
  Transmission Date: 20120608
  Serious: Yes (Death, Hospitalization)
  Sender: FDA-Public Use
  Company Number: 2012HGS-003214

PATIENT
  Age: 36 Year
  Sex: Female
  Weight: 81.6475 kg

DRUGS (29)
  1. ACYCLOVIR [Concomitant]
  2. NASONEX (MOMETASONE FUROATE) (MOMETASONE FUROATE) [Concomitant]
  3. AMLODIPINE [Concomitant]
  4. PLAQUENIL (HYDROXYCLOROQUINE SULFATE) (HYDROXYCHLOROQUINE SULFATE) [Concomitant]
  5. HYDROXYZINE [Concomitant]
  6. FLEXERIL (CYCLOBENZAPRINE HYDROCHLORIDE) (CYCLOBENZAPRINE HYDROCHLORID [Concomitant]
  7. BENLYSTA [Suspect]
     Indication: CUTANEOUS LUPUS ERYTHEMATOSUS
     Dosage: 10MG/KG, 1 IN 28 D, INTRAVENOUS DRIP
     Route: 041
     Dates: start: 20120110, end: 20120110
  8. POTASSIUM SUPPLEMENT (POTASSIUM CHLORIDE) (POTASSIUM CHLORIDE) [Concomitant]
  9. HYOMAX (HYSCYAMINE SULFATE) (HYOSCYAMINE SULFATE) [Concomitant]
  10. LYRICA [Concomitant]
  11. METOPROLOL XL (METOPROLOL) (METOPROLOL) [Concomitant]
  12. ARMOUR THYROID (THYROID) (THYROID) [Concomitant]
  13. MAG OXIDE (MAGNESIUM OXIDE) (MAGNESIUM OXIDE) [Concomitant]
  14. DOXYCYCLINE [Concomitant]
  15. VIIBRYD (VILAZODONE HYDROCHLORIDE) (VILAZODONE HYDROCHLORIDE) [Concomitant]
  16. VYVANSE (LISDEXAMFETAMINE MESILATE) (LISDEXAMFETAMINE MESILATE) [Concomitant]
  17. MYCOPHENOLATE (MYCOPHENOLATE MOFETIL) (MYCOPHENOLATE MESILATE) [Concomitant]
  18. CELEBREX [Concomitant]
  19. PREDNISONE [Concomitant]
  20. CLORAZEPATE (CLORAZEPATE DIPOTASSIUM) (CLORAZEPATE DIPOTASSIUM) [Concomitant]
  21. SINGULAIR (MONTELUKAST SODIUM) (MONTELUKAST SODIUM) [Concomitant]
  22. PROTONIX (PANTOPRAZOLE SODIUM SESQUIHYDRATE) (PANTOPRAZOLE SODIUM SESQ [Concomitant]
  23. CALCIUM CITRATE WITH VITAMIN D (CALCIUM CITRATE W/COLECALCIFEROL) (COL [Concomitant]
  24. OPANA ER (OXYMORPHONE HYDROCHLORIDE) (OXYMORPHONE HYDROCHLORIDE) [Concomitant]
  25. ASTEPRO (AZELASTINE HYDROCHLORIDE) (AZELASTINE HYDROCHLORIDE) [Concomitant]
  26. VITAMIN C (ASCORBIC ACID) (ASCORBIC ACID) [Concomitant]
  27. LASIX [Concomitant]
  28. BACTROBAN OINTMENT (MUPIROCIN) (MUPIROCIN) [Concomitant]
  29. ZOLOFT [Concomitant]

REACTIONS (3)
  - DYSPNOEA [None]
  - CARDIAC ARREST [None]
  - ASPIRATION [None]
